FAERS Safety Report 25493270 (Version 1)
Quarter: 2025Q2

REPORT INFORMATION
  Report Type: Spontaneous
  Country: GB (occurrence: GB)
  Receive Date: 20250630
  Receipt Date: 20250630
  Transmission Date: 20250717
  Serious: Yes (Other)
  Sender: TAKEDA
  Company Number: None

PATIENT
  Age: 49 Year
  Sex: Female

DRUGS (2)
  1. LISDEXAMFETAMINE DIMESYLATE [Suspect]
     Active Substance: LISDEXAMFETAMINE DIMESYLATE
     Indication: Attention deficit hyperactivity disorder
     Dosage: 30 MILLIGRAM, QD
     Dates: start: 20250619, end: 20250625
  2. VENLAFAXINE [Concomitant]
     Active Substance: VENLAFAXINE HYDROCHLORIDE
     Indication: Menopause
     Dates: start: 20250619, end: 20250623

REACTIONS (6)
  - Chest pain [Recovering/Resolving]
  - Hypoaesthesia [Recovering/Resolving]
  - Echocardiogram [Recovering/Resolving]
  - Confusional state [Recovering/Resolving]
  - Migraine [Not Recovered/Not Resolved]
  - Arrhythmia [Unknown]

NARRATIVE: CASE EVENT DATE: 20250622
